FAERS Safety Report 8905733 (Version 1)
Quarter: 2012Q4

REPORT INFORMATION
  Report Type: 
  Country: CA (occurrence: CA)
  Receive Date: 20121109
  Receipt Date: 20121109
  Transmission Date: 20130627
  Serious: Yes (Other)
  Sender: FDA-Public Use
  Company Number: PHMT2006CA00951

PATIENT
  Sex: Male

DRUGS (6)
  1. SANDOSTATIN LAR [Suspect]
     Indication: CARCINOID TUMOUR
     Dosage: 20 mg every 4 weeks
     Dates: start: 20050329
  2. ATIVAN [Concomitant]
  3. DILAUDID [Concomitant]
  4. NOVOSPIROTON [Concomitant]
  5. NOVOSEMIDE [Concomitant]
  6. PANTOLOC [Concomitant]

REACTIONS (19)
  - Influenza [Unknown]
  - Sinusitis [Unknown]
  - Blood pressure decreased [Unknown]
  - Hyperglycaemia [Unknown]
  - Abdominal pain [Unknown]
  - Diarrhoea [Unknown]
  - Abdominal distension [Unknown]
  - Flatulence [Unknown]
  - Constipation [Unknown]
  - Dyspnoea [Unknown]
  - Blood glucose increased [Unknown]
  - Fatigue [Unknown]
  - Increased upper airway secretion [Unknown]
  - Blood pressure increased [Unknown]
  - Hyperhidrosis [Unknown]
  - Paraesthesia [Unknown]
  - Anxiety [Unknown]
  - Back pain [Unknown]
  - Hypoglycaemia [Unknown]
